FAERS Safety Report 14859956 (Version 1)
Quarter: 2018Q2

REPORT INFORMATION
  Report Type: Spontaneous
  Country: US (occurrence: US)
  Receive Date: 20180508
  Receipt Date: 20180508
  Transmission Date: 20180711
  Serious: No
  Sender: FDA-Public Use
  Company Number: US-MYLANLABS-2018M1029146

PATIENT
  Sex: Female

DRUGS (2)
  1. DIPHENOXYLATE HYDROCHLORIDE AND ATROPINE SULFATE TABLETS, USP [Suspect]
     Active Substance: ATROPINE\DIPHENOXYLATE HYDROCHLORIDE
     Indication: DIARRHOEA
     Dosage: 3 TABLETS ONE HOUR BEFORE MEALS WHICH CAN BE 2-3 MEALS PER DAY
     Route: 048
     Dates: start: 2017
  2. QUESTRAN AVENTIS [Concomitant]
     Indication: PRODUCT USED FOR UNKNOWN INDICATION
     Dosage: UNK

REACTIONS (3)
  - Insomnia [Unknown]
  - Drug effect decreased [Unknown]
  - Diarrhoea [Unknown]
